FAERS Safety Report 4960349-0 (Version None)
Quarter: 2006Q2

REPORT INFORMATION
  Report Type: 
  Country: None (occurrence: None)
  Receive Date: 20060403
  Receipt Date: 20060323
  Transmission Date: 20061013
  Serious: Yes (Other)
  Sender: FDA-Public Use
  Company Number: JP-BRISTOL-MYERS SQUIBB COMPANY-13332481

PATIENT
  Age: 46 Year
  Sex: Female

DRUGS (1)
  1. ENDOXAN [Suspect]
     Indication: PEMPHIGOID
     Route: 041
     Dates: start: 20050606, end: 20050606

REACTIONS (1)
  - HEPATITIS CHOLESTATIC [None]
